FAERS Safety Report 6597141-X (Version None)
Quarter: 2010Q1

REPORT INFORMATION
  Report Type: 
  Country: None (occurrence: None)
  Receive Date: 20100223
  Receipt Date: 20100211
  Transmission Date: 20100710
  Serious: Yes (Other)
  Sender: FDA-Public Use
  Company Number: US-WYE-H13616510

PATIENT
  Sex: Female

DRUGS (3)
  1. EFFEXOR XR [Suspect]
     Indication: DEPRESSION
     Route: 048
  2. EFFEXOR XR [Suspect]
     Route: 048
  3. EFFEXOR XR [Suspect]
     Route: 048

REACTIONS (4)
  - DRUG DEPENDENCE [None]
  - DRUG WITHDRAWAL SYNDROME [None]
  - HEADACHE [None]
  - PARAESTHESIA [None]
